FAERS Safety Report 17374749 (Version 2)
Quarter: 2020Q1

REPORT INFORMATION
  Report Type: Report from Study
  Country: None (occurrence: TW)
  Receive Date: 20200206
  Receipt Date: 20200223
  Transmission Date: 20200409
  Serious: Yes (Hospitalization)
  Sender: FDA-Public Use
  Company Number: TW-ABBVIE-20K-153-3258706-00

PATIENT
  Age: 34 Year
  Sex: Male
  Weight: 65 kg

DRUGS (1)
  1. HUMIRA [Suspect]
     Active Substance: ADALIMUMAB
     Indication: CROHN^S DISEASE
     Route: 058
     Dates: start: 20191106, end: 20191203

REACTIONS (12)
  - Drug ineffective [Unknown]
  - Haematocrit decreased [Unknown]
  - Aphthous ulcer [Unknown]
  - Anaemia [Not Recovered/Not Resolved]
  - Diarrhoea [Not Recovered/Not Resolved]
  - Blood albumin decreased [Not Recovered/Not Resolved]
  - Red blood cell count decreased [Unknown]
  - Enterocolonic fistula [Unknown]
  - Haematochezia [Not Recovered/Not Resolved]
  - Large intestinal haemorrhage [Unknown]
  - Gastrooesophageal reflux disease [Unknown]
  - Haemoglobin decreased [Not Recovered/Not Resolved]

NARRATIVE: CASE EVENT DATE: 20191203
